FAERS Safety Report 9494528 (Version 1)
Quarter: 2013Q3

REPORT INFORMATION
  Report Type: Spontaneous
  Country: US (occurrence: None)
  Receive Date: 20130830
  Receipt Date: 20130830
  Transmission Date: 20140515
  Serious: No
  Sender: FDA-Public Use
  Company Number: None

PATIENT
  Age: 49 Year
  Sex: Female

DRUGS (5)
  1. SENSIPAR [Suspect]
     Indication: THYROID DISORDER
     Dosage: 1 PILL  DAILY  BY MOUTH
     Route: 048
     Dates: start: 20130622, end: 20130727
  2. TOPAMAX [Concomitant]
  3. OMEPRAZOLE [Concomitant]
  4. NORVASC [Concomitant]
  5. BAYER LOW DOSE ASPIRIN [Concomitant]

REACTIONS (1)
  - Muscle spasms [None]
